FAERS Safety Report 4547895-9 (Version None)
Quarter: 2005Q1

REPORT INFORMATION
  Report Type: 
  Country: None (occurrence: None)
  Receive Date: 20050110
  Receipt Date: 20041229
  Transmission Date: 20050727
  Serious: Yes (Hospitalization)
  Sender: FDA-Public Use
  Company Number: US-JNJFOC-20040909529

PATIENT
  Sex: Female
  Weight: 77.27 kg

DRUGS (12)
  1. REMICADE [Suspect]
     Indication: CROHN'S DISEASE
     Route: 042
  2. IMURAN [Concomitant]
  3. PREVACID [Concomitant]
  4. DARVOCET [Concomitant]
  5. DARVOCET [Concomitant]
  6. REBIF [Concomitant]
  7. TOPAMAX [Concomitant]
  8. PROVIGIL [Concomitant]
  9. NEURONTIN [Concomitant]
  10. ASACOL [Concomitant]
  11. PREDNISONE [Concomitant]
  12. ESCITALOPRAM [Concomitant]

REACTIONS (4)
  - BACTERIAL INFECTION [None]
  - DIARRHOEA [None]
  - NAUSEA [None]
  - VOMITING [None]
